FAERS Safety Report 6300830-5 (Version None)
Quarter: 2009Q3

REPORT INFORMATION
  Report Type: 
  Country: None (occurrence: None)
  Receive Date: 20090807
  Receipt Date: 20090729
  Transmission Date: 20100115
  Serious: Yes (Hospitalization)
  Sender: FDA-Public Use
  Company Number: IT-PFIZER INC-2009247167

PATIENT
  Age: 54 Year

DRUGS (4)
  1. LYRICA [Suspect]
     Dosage: 75 MG, UNK
  2. LYRICA [Suspect]
     Dosage: 25 MG, UNK
  3. TAVOR [Concomitant]
  4. SEREUPIN [Concomitant]

REACTIONS (2)
  - DYSPNOEA [None]
  - INFARCTION [None]
